FAERS Safety Report 5462532-7 (Version None)
Quarter: 2007Q3

REPORT INFORMATION
  Report Type: 
  Country: None (occurrence: None)
  Receive Date: 20070920
  Receipt Date: 20070129
  Transmission Date: 20080115
  Serious: No
  Sender: FDA-Public Use
  Company Number: A0637160A

PATIENT
  Age: 66 Year
  Sex: Female

DRUGS (1)
  1. ABREVA [Suspect]
     Dates: start: 20070123

REACTIONS (2)
  - APPLICATION SITE PAIN [None]
  - DRUG INEFFECTIVE [None]
